FAERS Safety Report 15203350 (Version 1)
Quarter: 2018Q4

REPORT INFORMATION
  Report Type: Spontaneous
  Country: ZA (occurrence: ZA)
  Receive Date: 20180726
  Receipt Date: 20180726
  Transmission Date: 20190204
  Serious: Yes (Hospitalization)
  Sender: FDA-Public Use
  Company Number: ZA-PFIZER INC-2018299048

PATIENT
  Age: 74 Year
  Sex: Female

DRUGS (9)
  1. ZOLPIHEXAL [Suspect]
     Active Substance: ZOLPIDEM TARTRATE
     Dosage: 10 MG, UNK
  2. DIAGLUCIDE [Suspect]
     Active Substance: GLICLAZIDE
     Dosage: 30 MG, UNK
  3. XALATAN [Suspect]
     Active Substance: LATANOPROST
     Dosage: 50 MCG
  4. PHARMAPRESS (ENALAPRIL MALEATE) [Suspect]
     Active Substance: ENALAPRIL MALEATE
     Dosage: 20 MG, UNK
  5. COXLEON [Suspect]
     Active Substance: CELECOXIB
     Dosage: 200 MG, UNK
  6. PLENISH-K [Suspect]
     Active Substance: POTASSIUM CHLORIDE
     Dosage: 600 MG, UNK
  7. COSOPT [Suspect]
     Active Substance: DORZOLAMIDE HYDROCHLORIDE\TIMOLOL MALEATE
     Dosage: 0.5 %, UNK
  8. CELEBREX [Suspect]
     Active Substance: CELECOXIB
     Indication: ADENOMATOUS POLYPOSIS COLI
     Dosage: 200 MG, UNK
  9. BASAGLAR [Suspect]
     Active Substance: INSULIN GLARGINE
     Dosage: 100 IU, UNK

REACTIONS (3)
  - Fall [Unknown]
  - Eye injury [Unknown]
  - Retinal tear [Unknown]
